FAERS Safety Report 9681438 (Version 1)
Quarter: 2013Q4

REPORT INFORMATION
  Report Type: Spontaneous
  Country: US (occurrence: US)
  Receive Date: 20131111
  Receipt Date: 20131111
  Transmission Date: 20140711
  Serious: No
  Sender: FDA-Public Use
  Company Number: US-BAYER-2013-134998

PATIENT
  Sex: 0

DRUGS (3)
  1. MIDOL EXTENDED RELIEF CAPLET [Suspect]
     Indication: SINUSITIS
     Dosage: 2 DF, UNK
  2. TYLENOL [PARACETAMOL] [Suspect]
     Indication: SINUSITIS
     Dosage: 2
  3. ALLERGY MEDICATION [Suspect]
     Indication: SINUSITIS
     Dosage: 1 DF, UNK

REACTIONS (1)
  - Therapeutic response unexpected [None]
